FAERS Safety Report 7083696-8 (Version None)
Quarter: 2010Q4

REPORT INFORMATION
  Report Type: 
  Country: None (occurrence: None)
  Receive Date: 20101103
  Receipt Date: 20101103
  Transmission Date: 20110411
  Serious: Yes (Other)
  Sender: FDA-Public Use
  Company Number: None

PATIENT
  Age: 48 Year
  Sex: Female

DRUGS (1)
  1. METHOTREXATE 50MG/2ML PARENTA [Suspect]
     Indication: RHEUMATOID ARTHRITIS
     Dates: start: 20100623, end: 20101027

REACTIONS (4)
  - CONTUSION [None]
  - DEVICE ISSUE [None]
  - INJECTION SITE PAIN [None]
  - PRODUCT QUALITY ISSUE [None]
